FAERS Safety Report 6657606-9 (Version None)
Quarter: 2010Q1

REPORT INFORMATION
  Report Type: 
  Country: None (occurrence: None)
  Receive Date: 20100330
  Receipt Date: 20100319
  Transmission Date: 20100710
  Serious: Yes (Other)
  Sender: FDA-Public Use
  Company Number: US-SANOFI-AVENTIS-2010SA016618

PATIENT
  Age: 70 Year
  Sex: Female

DRUGS (6)
  1. MULTAQ [Suspect]
     Indication: ATRIAL FIBRILLATION
     Dosage: ONE HALF TABLET TWICE A DAY
     Route: 048
     Dates: start: 20091101, end: 20100301
  2. MULTAQ [Suspect]
     Route: 048
     Dates: start: 20100308
  3. COUMADIN [Suspect]
     Route: 048
     Dates: start: 20070101, end: 20100301
  4. COUMADIN [Suspect]
     Route: 048
     Dates: start: 20100301
  5. CARDIZEM [Concomitant]
     Indication: ATRIAL FIBRILLATION
     Route: 048
     Dates: start: 20070101
  6. SYNTHROID [Concomitant]
     Route: 048
     Dates: start: 20070101

REACTIONS (8)
  - ABDOMINAL DISCOMFORT [None]
  - ATRIAL FIBRILLATION [None]
  - BLOOD PRESSURE INCREASED [None]
  - COUGH [None]
  - DIARRHOEA [None]
  - HAEMORRHAGE [None]
  - INCORRECT DOSE ADMINISTERED [None]
  - INTERNATIONAL NORMALISED RATIO INCREASED [None]
